FAERS Safety Report 5615748-0 (Version None)
Quarter: 2008Q1

REPORT INFORMATION
  Report Type: 
  Country: None (occurrence: None)
  Receive Date: 20080201
  Receipt Date: 20080117
  Transmission Date: 20080703
  Serious: Yes (Other)
  Sender: FDA-Public Use
  Company Number: 6040328

PATIENT
  Age: 19 Year
  Sex: Female

DRUGS (4)
  1. DETENSIEL (10 MG, TABLET (BISOPROLOL, FUMARATE) [Suspect]
     Indication: DRUG USE FOR UNKNOWN INDICATION
     Dosage: 0, 5 DOSAGE FORMS (0,5 DOSAGE FORM, 1 IN 1D), ORAL
     Route: 048
  2. XATRAL (2,5 MG, TABLET) (ALFUZOSIN) [Suspect]
     Indication: DRUG USE FOR UNKNOWN INDICATION
     Dosage: 3 DOSAGE FORMS (2, 5 MG, 1 D), ORAL
     Route: 048
  3. LANZOR (CAPSULE) (LANSOPRAZOLE) [Suspect]
     Indication: DRUG USE FOR UNKNOWN INDICATION
     Dosage: 1 DOSAGE FORMS (30 MG, 1 D), ORAL
     Route: 048
  4. MNESIS (45 MG, TABLET) (IDEBENONE) [Suspect]
     Indication: PRIMARY CEREBELLAR DEGENERATION
     Dosage: 15 DOSAGE FORMS (5 DOSAGE FORMS, 3 IN 1 D), ORAL
     Route: 048
     Dates: start: 20030615

REACTIONS (2)
  - DIABETES MELLITUS [None]
  - PARAPARESIS [None]
